FAERS Safety Report 18091963 (Version 3)
Quarter: 2021Q1

REPORT INFORMATION
  Report Type: Spontaneous
  Country: US (occurrence: US)
  Receive Date: 20200730
  Receipt Date: 20210311
  Transmission Date: 20210419
  Serious: Yes (Other)
  Sender: FDA-Public Use
  Company Number: US-GLAXOSMITHKLINE-US2020146273

PATIENT
  Sex: Male

DRUGS (7)
  1. ZANTAC [Suspect]
     Active Substance: RANITIDINE HYDROCHLORIDE
     Indication: HYPERCHLORHYDRIA
  2. RANITIDINE CAPSULE [Suspect]
     Active Substance: RANITIDINE
     Indication: GASTROOESOPHAGEAL REFLUX DISEASE
     Dosage: 75 MG, QD
     Route: 065
     Dates: start: 201401, end: 201712
  3. ZANTAC [Suspect]
     Active Substance: RANITIDINE HYDROCHLORIDE
     Indication: DYSPEPSIA
     Dosage: 150 MG, QD
     Route: 065
     Dates: start: 201401, end: 201712
  4. RANITIDINE CAPSULE [Suspect]
     Active Substance: RANITIDINE
     Indication: DYSPEPSIA
     Dosage: 150 MG, QD
     Route: 065
     Dates: start: 201401, end: 201712
  5. ZANTAC [Suspect]
     Active Substance: RANITIDINE HYDROCHLORIDE
     Dosage: UNK
     Route: 065
     Dates: start: 20140215, end: 20150615
  6. ZANTAC [Suspect]
     Active Substance: RANITIDINE HYDROCHLORIDE
     Indication: GASTROOESOPHAGEAL REFLUX DISEASE
     Dosage: 75 MG, QD
     Route: 065
     Dates: start: 201401, end: 201712
  7. RANITIDINE CAPSULE [Suspect]
     Active Substance: RANITIDINE
     Indication: HYPERCHLORHYDRIA

REACTIONS (1)
  - Pancreatic carcinoma [Unknown]
